FAERS Safety Report 7318848-2 (Version None)
Quarter: 2011Q1

REPORT INFORMATION
  Report Type: 
  Country: None (occurrence: None)
  Receive Date: 20110228
  Receipt Date: 20101108
  Transmission Date: 20110831
  Serious: No
  Sender: FDA-Public Use
  Company Number: A0885340A

PATIENT
  Age: 57 Year
  Sex: Male

DRUGS (2)
  1. SUMATRIPTAN SUCCINATE [Suspect]
     Route: 058
  2. SUMATRIPTAN SUCCINATE [Suspect]
     Dosage: 6MG AS REQUIRED
     Route: 058
     Dates: start: 20081201, end: 20101001

REACTIONS (4)
  - INJECTION SITE PAIN [None]
  - DRUG INEFFECTIVE [None]
  - NEEDLE ISSUE [None]
  - PRODUCT QUALITY ISSUE [None]
